FAERS Safety Report 5488634-7 (Version None)
Quarter: 2007Q4

REPORT INFORMATION
  Report Type: 
  Country: None (occurrence: None)
  Receive Date: 20071017
  Receipt Date: 20061114
  Transmission Date: 20080405
  Serious: No
  Sender: FDA-Public Use
  Company Number: A0627505A

PATIENT
  Age: 5 Year
  Sex: Male

DRUGS (1)
  1. CEFTIN [Suspect]
     Dosage: 1TSP TWICE PER DAY
     Route: 048
     Dates: start: 20061112

REACTIONS (4)
  - COUGH [None]
  - DRUG INEFFECTIVE [None]
  - PHARMACEUTICAL PRODUCT COMPLAINT [None]
  - RHINORRHOEA [None]
